FAERS Safety Report 14316887 (Version 32)
Quarter: 2022Q3

REPORT INFORMATION
  Report Type: Other
  Country: GB (occurrence: GB)
  Receive Date: 20171222
  Receipt Date: 20220706
  Transmission Date: 20221027
  Serious: Yes (Other)
  Sender: FDA-Public Use
  Company Number: GB-ASPEN-GLO2017GB008664

PATIENT

DRUGS (111)
  1. MELPHALAN [Suspect]
     Active Substance: MELPHALAN
     Indication: Plasma cell leukaemia
     Dosage: 14 MG, QD, 1 CYCLE
     Route: 065
     Dates: start: 20171107, end: 20171110
  2. MELPHALAN [Suspect]
     Active Substance: MELPHALAN
     Dosage: 14 MG, QD
     Route: 065
     Dates: start: 20171103, end: 20171103
  3. MELPHALAN [Suspect]
     Active Substance: MELPHALAN
     Dosage: 14 MG, 1 CYCLE
     Route: 065
  4. MELPHALAN [Suspect]
     Active Substance: MELPHALAN
     Dosage: UNK (1 CYCLE)
     Route: 065
     Dates: start: 20171110
  5. MELPHALAN [Suspect]
     Active Substance: MELPHALAN
     Dosage: 14 MG, TID
     Route: 065
     Dates: start: 20171103, end: 20171106
  6. MELPHALAN [Suspect]
     Active Substance: MELPHALAN
     Dosage: UNK
     Route: 065
     Dates: start: 20171110, end: 20171114
  7. MELPHALAN [Suspect]
     Active Substance: MELPHALAN
     Dosage: 14 MG, QD
     Route: 065
     Dates: start: 20171106, end: 20171106
  8. MELPHALAN [Suspect]
     Active Substance: MELPHALAN
     Dosage: 14 MG, QD
     Route: 065
     Dates: start: 20171110, end: 20171110
  9. MELPHALAN [Suspect]
     Active Substance: MELPHALAN
     Dosage: UNK
     Route: 065
     Dates: start: 201711, end: 20171107
  10. MELPHALAN [Suspect]
     Active Substance: MELPHALAN
     Dosage: 56 MG
     Route: 065
     Dates: start: 20171106, end: 20171106
  11. MELPHALAN [Suspect]
     Active Substance: MELPHALAN
     Dosage: UNK
     Route: 065
     Dates: start: 20171106, end: 20171106
  12. MELPHALAN [Suspect]
     Active Substance: MELPHALAN
     Dosage: UNK
     Route: 065
     Dates: start: 20171110, end: 20171110
  13. MELPHALAN [Suspect]
     Active Substance: MELPHALAN
     Dosage: UNK
     Route: 065
     Dates: start: 20171103, end: 20171103
  14. MELPHALAN [Suspect]
     Active Substance: MELPHALAN
     Dosage: 14 MG,  1 CYCLE
     Route: 065
  15. MELPHALAN [Suspect]
     Active Substance: MELPHALAN
     Dosage: 14 MG,  1 CYCLE
     Route: 065
     Dates: start: 20171103, end: 20171106
  16. ALLOPURINOL [Suspect]
     Active Substance: ALLOPURINOL
     Indication: Product used for unknown indication
     Dosage: 300 MG, QD
     Route: 065
     Dates: start: 20171104, end: 20171120
  17. ALLOPURINOL [Suspect]
     Active Substance: ALLOPURINOL
     Dosage: 300 MG, QD
     Route: 065
     Dates: start: 20171114
  18. ALLOPURINOL [Suspect]
     Active Substance: ALLOPURINOL
     Dosage: 300 MILLIGRAM (THERAPY IS ONGOING)
     Route: 065
     Dates: start: 20171120
  19. ALLOPURINOL [Suspect]
     Active Substance: ALLOPURINOL
     Dosage: 30 MG, QD
     Route: 065
     Dates: start: 20171120
  20. ALLOPURINOL [Suspect]
     Active Substance: ALLOPURINOL
     Dosage: 30 MG, QD,
     Route: 065
     Dates: start: 20171104, end: 20171120
  21. ALLOPURINOL [Suspect]
     Active Substance: ALLOPURINOL
     Dosage: 300 MG, QD
     Route: 065
  22. ALLOPURINOL [Suspect]
     Active Substance: ALLOPURINOL
     Dosage: UNK
     Route: 065
  23. ALLOPURINOL [Suspect]
     Active Substance: ALLOPURINOL
     Dosage: UNK
     Route: 065
     Dates: start: 20171120
  24. ALLOPURINOL [Suspect]
     Active Substance: ALLOPURINOL
     Dosage: 120 MG
     Route: 065
  25. ALLOPURINOL [Suspect]
     Active Substance: ALLOPURINOL
     Dosage: 300 UNK
     Route: 065
     Dates: start: 20181120
  26. ALLOPURINOL [Suspect]
     Active Substance: ALLOPURINOL
     Dosage: 300 MILLIGRAM DAILY; MEDICATION ERROR, MISUSE, ABUSE,
     Route: 065
     Dates: start: 20171104
  27. ALLOPURINOL [Suspect]
     Active Substance: ALLOPURINOL
     Dosage: 30 MILLIGRAM, DAILY MEDICATION ERROR, MISUSE, ABUSE, OFF LABEL USE
     Route: 065
     Dates: start: 20171104, end: 20171120
  28. DEXAMETHASONE [Suspect]
     Active Substance: DEXAMETHASONE
     Indication: Plasma cell leukaemia
     Dosage: 20 MG, QD
     Route: 065
     Dates: start: 20171102, end: 20171106
  29. DEXAMETHASONE [Suspect]
     Active Substance: DEXAMETHASONE
     Indication: Product used for unknown indication
     Dosage: 20 MG, QD
     Route: 065
     Dates: start: 20171102, end: 20171106
  30. DEXAMETHASONE [Suspect]
     Active Substance: DEXAMETHASONE
     Dosage: 20 MG
     Route: 065
  31. DEXAMETHASONE [Suspect]
     Active Substance: DEXAMETHASONE
     Dosage: 100 MG
     Route: 065
  32. DEXAMETHASONE [Suspect]
     Active Substance: DEXAMETHASONE
     Dosage: 100 MG
     Route: 065
     Dates: start: 20171102, end: 20171106
  33. DEXAMETHASONE [Suspect]
     Active Substance: DEXAMETHASONE
     Dosage: UNK
     Route: 065
  34. DEXAMETHASONE [Suspect]
     Active Substance: DEXAMETHASONE
     Dosage: 20 MG
     Route: 065
  35. DEXAMETHASONE [Suspect]
     Active Substance: DEXAMETHASONE
     Dosage: 200 MG
     Route: 065
  36. DEXAMETHASONE [Suspect]
     Active Substance: DEXAMETHASONE
     Dosage: 20 MILLIGRAM DAILY;MEDICATION ERROR, MISUSE, ABUSE, OFF LABEL USE
     Route: 065
     Dates: start: 20171102, end: 20171106
  37. FENTANYL [Suspect]
     Active Substance: FENTANYL
     Indication: Product used for unknown indication
     Dosage: 12 MCG Q1HR
     Route: 062
     Dates: start: 20171108
  38. FENTANYL [Suspect]
     Active Substance: FENTANYL
     Dosage: 1 UNK, 1 DOSE HOURLY
     Route: 062
     Dates: start: 20171108
  39. FENTANYL CITRATE [Suspect]
     Active Substance: FENTANYL CITRATE
     Indication: Product used for unknown indication
     Dosage: 12 MCG, 1 DOSE HOURLY (SOLUTION FOR INJECTION)
     Route: 055
     Dates: start: 20171108
  40. FENTANYL CITRATE [Suspect]
     Active Substance: FENTANYL CITRATE
     Dosage: 12 MCG, 1 DOSE HOURLY
     Route: 055
     Dates: start: 20171108
  41. FENTANYL CITRATE [Suspect]
     Active Substance: FENTANYL CITRATE
     Dosage: 12 MCG, 1 DOSE HOURLY
     Route: 055
     Dates: start: 20171108
  42. FENTANYL CITRATE [Suspect]
     Active Substance: FENTANYL CITRATE
     Dosage: 12 MCG, 1 DOSE HOURLY
     Route: 055
     Dates: start: 20171108
  43. FENTANYL CITRATE [Suspect]
     Active Substance: FENTANYL CITRATE
     Dosage: 12 MCG
     Route: 055
     Dates: start: 20171108
  44. SODIUM CHLORIDE [Suspect]
     Active Substance: SODIUM CHLORIDE
     Indication: Medication dilution
     Dosage: 1 CYCLE
     Route: 041
     Dates: start: 20171110, end: 20171114
  45. SODIUM CHLORIDE [Suspect]
     Active Substance: SODIUM CHLORIDE
     Dosage: UNK UNK, QD, 1 CYCLE
     Route: 041
     Dates: start: 20171107, end: 201711
  46. SODIUM CHLORIDE [Suspect]
     Active Substance: SODIUM CHLORIDE
     Dosage: UNK, 1 CYCLE
     Route: 065
     Dates: start: 20171113, end: 20171113
  47. SODIUM CHLORIDE [Suspect]
     Active Substance: SODIUM CHLORIDE
     Dosage: UNK (1 CYCLE)
     Route: 041
     Dates: start: 20171106, end: 20171106
  48. SODIUM CHLORIDE [Suspect]
     Active Substance: SODIUM CHLORIDE
     Dosage: 1 CYCLE
     Route: 041
     Dates: start: 20171103, end: 20171106
  49. SODIUM CHLORIDE [Suspect]
     Active Substance: SODIUM CHLORIDE
     Dosage: 1 CYCLE
     Route: 041
     Dates: start: 20171110, end: 20171110
  50. SODIUM CHLORIDE [Suspect]
     Active Substance: SODIUM CHLORIDE
     Dosage: UNK, 1 CYCLE
     Route: 042
     Dates: start: 20171103, end: 20171103
  51. SODIUM CHLORIDE [Suspect]
     Active Substance: SODIUM CHLORIDE
     Dosage: UNK
     Route: 065
     Dates: start: 20171103
  52. PREDNISONE [Suspect]
     Active Substance: PREDNISONE
     Indication: Plasma cell leukaemia
     Dosage: 70 MG, QD 1 CYCLE
     Route: 065
     Dates: start: 20171103, end: 20171103
  53. PREDNISONE [Suspect]
     Active Substance: PREDNISONE
     Dosage: 70 MILLIGRAM, QD, 1 CYCLE
     Route: 065
     Dates: start: 20171106, end: 20171106
  54. PREDNISONE [Suspect]
     Active Substance: PREDNISONE
     Dosage: 70 MG, QD, 1 CYCLE
     Route: 065
  55. PREDNISONE [Suspect]
     Active Substance: PREDNISONE
     Dosage: 70 MG
     Route: 065
  56. PREDNISONE [Suspect]
     Active Substance: PREDNISONE
     Dosage: 70 MILLIGRAM, QD, 1 CYCLE
     Route: 065
     Dates: start: 20171103, end: 20171106
  57. PREDNISONE [Suspect]
     Active Substance: PREDNISONE
     Dosage: 70 MILLIGRAM, QD, 1 CYCLE
     Route: 065
     Dates: start: 20171106, end: 20171106
  58. PREDNISONE [Suspect]
     Active Substance: PREDNISONE
     Dosage: 70 MG, QD 1 CYCLE
     Route: 065
     Dates: start: 20171103, end: 20171103
  59. VELCADE [Suspect]
     Active Substance: BORTEZOMIB
     Indication: Plasma cell leukaemia
     Dosage: 1.8 MG/M2
     Route: 058
     Dates: start: 20171110, end: 20171114
  60. VELCADE [Suspect]
     Active Substance: BORTEZOMIB
     Dosage: 1.8 MG
     Route: 058
     Dates: start: 20171107, end: 201711
  61. VELCADE [Suspect]
     Active Substance: BORTEZOMIB
     Dosage: 1.3 MG/M2, 1 CYCLE
     Route: 058
     Dates: start: 20171110, end: 20171110
  62. VELCADE [Suspect]
     Active Substance: BORTEZOMIB
     Dosage: 1.3 MG/M2, 1 CYCLE
     Route: 058
     Dates: start: 20171113, end: 20171113
  63. VELCADE [Suspect]
     Active Substance: BORTEZOMIB
     Dosage: 1.3 MG/M2, 1 CYCLE
     Route: 058
     Dates: start: 20171116, end: 20171116
  64. VELCADE [Suspect]
     Active Substance: BORTEZOMIB
     Dosage: 1.8 MG/M2, 1 CYCLE
     Route: 058
     Dates: start: 20171103, end: 20171103
  65. VELCADE [Suspect]
     Active Substance: BORTEZOMIB
     Dosage: 1.3 MG/M2, 1 CYCLE
     Route: 058
     Dates: start: 20171106, end: 20171106
  66. VELCADE [Suspect]
     Active Substance: BORTEZOMIB
     Dosage: UNK, LYOPHILIZED POWDER
     Route: 058
  67. VELCADE [Suspect]
     Active Substance: BORTEZOMIB
     Dosage: 1.8 MG/M2
     Route: 058
     Dates: start: 20171107, end: 201711
  68. VELCADE [Suspect]
     Active Substance: BORTEZOMIB
     Dosage: 1.3 MG/M2, 1 CYCLE
     Route: 058
     Dates: start: 20171103, end: 20171103
  69. VELCADE [Suspect]
     Active Substance: BORTEZOMIB
     Dosage: UNK
  70. VELCADE [Suspect]
     Active Substance: BORTEZOMIB
     Dosage: 1.3 MG/M2, 1 CYCLE
     Route: 058
     Dates: start: 20171103, end: 20171103
  71. VELCADE [Suspect]
     Active Substance: BORTEZOMIB
     Dosage: 1.8 MG/M2
     Route: 058
     Dates: start: 20171110, end: 20171114
  72. FENTANYL [Suspect]
     Active Substance: FENTANYL
     Indication: Product used for unknown indication
     Dosage: 12 MCG, 1 DOSE HOURLY
     Route: 062
     Dates: start: 20171108
  73. FENTANYL [Suspect]
     Active Substance: FENTANYL
     Dosage: 12 MCG
     Route: 062
     Dates: start: 20171108
  74. FENTANYL [Suspect]
     Active Substance: FENTANYL
     Dosage: 12 MG, QH
     Route: 065
     Dates: start: 20171108
  75. OMEPRAZOLE [Suspect]
     Active Substance: OMEPRAZOLE
     Indication: Product used for unknown indication
     Dosage: 20 MG, QD (EVERY MORNING)
     Route: 048
  76. OMEPRAZOLE [Suspect]
     Active Substance: OMEPRAZOLE
     Dosage: 20 MG, QD
     Route: 065
  77. OMEPRAZOLE [Suspect]
     Active Substance: OMEPRAZOLE
     Dosage: 10 MG, QD
     Route: 048
  78. BENDROFLUMETHIAZIDE [Suspect]
     Active Substance: BENDROFLUMETHIAZIDE
     Indication: Product used for unknown indication
     Dosage: 2.5 MG, QD
     Route: 065
     Dates: start: 20171103, end: 20171103
  79. BENDROFLUMETHIAZIDE [Suspect]
     Active Substance: BENDROFLUMETHIAZIDE
     Dosage: 2 MG
     Route: 065
     Dates: start: 20171110, end: 20171114
  80. BENDROFLUMETHIAZIDE [Suspect]
     Active Substance: BENDROFLUMETHIAZIDE
     Dosage: 2 MG, QD
     Route: 065
     Dates: start: 20171107, end: 201711
  81. BENDROFLUMETHIAZIDE [Suspect]
     Active Substance: BENDROFLUMETHIAZIDE
     Dosage: 2 MG, QD
     Route: 065
     Dates: start: 20171103, end: 20171103
  82. BENDROFLUMETHIAZIDE [Suspect]
     Active Substance: BENDROFLUMETHIAZIDE
     Dosage: UNK1.8 MG/M2 Q_CYCLE / 1.3 MG/M2 DAILY /1.8UNK
     Route: 065
  83. BENDROFLUMETHIAZIDE [Suspect]
     Active Substance: BENDROFLUMETHIAZIDE
     Dosage: 10 MG, QD
     Route: 065
  84. BENDROFLUMETHIAZIDE [Suspect]
     Active Substance: BENDROFLUMETHIAZIDE
     Dosage: 2.5 MG, QD
     Route: 065
  85. BENDROFLUMETHIAZIDE [Suspect]
     Active Substance: BENDROFLUMETHIAZIDE
     Dosage: 3 MILLIGRAM
     Route: 065
     Dates: start: 20171107, end: 201711
  86. BENDROFLUMETHIAZIDE [Suspect]
     Active Substance: BENDROFLUMETHIAZIDE
     Dosage: 3 MILLIGRAM
     Route: 065
     Dates: end: 201711
  87. BENDROFLUMETHIAZIDE [Suspect]
     Active Substance: BENDROFLUMETHIAZIDE
     Dosage: 3 MG, QD
     Route: 065
  88. BENDROFLUMETHIAZIDE [Suspect]
     Active Substance: BENDROFLUMETHIAZIDE
     Dosage: UNK,1.8 MG/M2 Q_CYCLE / 1.3 MG/M2 DAILY /1.8UNK
     Route: 065
  89. BENDROFLUMETHIAZIDE [Suspect]
     Active Substance: BENDROFLUMETHIAZIDE
     Dosage: 3 MG, QD
     Route: 065
  90. RAMIPRIL [Suspect]
     Active Substance: RAMIPRIL
     Indication: Product used for unknown indication
     Dosage: 10 MG, QD, EVERY MORNING
     Route: 065
  91. RAMIPRIL [Suspect]
     Active Substance: RAMIPRIL
     Dosage: 10 MG, QD (UNSPECIFIED, EVERY MORNING)
     Route: 065
  92. BORTEZOMIB [Suspect]
     Active Substance: BORTEZOMIB
     Indication: Plasma cell leukaemia
     Dosage: 1.8 MG
     Route: 058
     Dates: start: 20171110, end: 20171114
  93. BORTEZOMIB [Suspect]
     Active Substance: BORTEZOMIB
     Dosage: 1.8 MG/M2
     Route: 058
     Dates: start: 20171107, end: 201711
  94. BORTEZOMIB [Suspect]
     Active Substance: BORTEZOMIB
     Dosage: 1.8 MG/M2, QD
     Route: 058
     Dates: start: 20171103, end: 20171103
  95. BORTEZOMIB [Suspect]
     Active Substance: BORTEZOMIB
     Dosage: 1.3 MG/M2 (EVERY CYCLE)
     Route: 058
     Dates: start: 20171110, end: 20171110
  96. BORTEZOMIB [Suspect]
     Active Substance: BORTEZOMIB
     Dosage: 1.3 MG/M2
     Route: 058
     Dates: start: 20171106, end: 20171106
  97. BORTEZOMIB [Suspect]
     Active Substance: BORTEZOMIB
     Dosage: 1.3 MG/M2, QD
     Route: 058
     Dates: start: 20171103, end: 20171103
  98. BORTEZOMIB [Suspect]
     Active Substance: BORTEZOMIB
     Dosage: 1.8 MG
     Route: 058
     Dates: start: 20171107, end: 201711
  99. BORTEZOMIB [Suspect]
     Active Substance: BORTEZOMIB
     Dosage: 1.8 MG
     Route: 058
     Dates: start: 20171103, end: 20171103
  100. METOCLOPRAMIDE [Suspect]
     Active Substance: METOCLOPRAMIDE
     Indication: Product used for unknown indication
     Dosage: 10 MG, PRN (AS NECESSARY)
     Route: 065
  101. METOCLOPRAMIDE [Suspect]
     Active Substance: METOCLOPRAMIDE
     Dosage: 10 MG, PRN (AS NECESSARY) NECESSARYMEDICATION ERROR, MISUSE, ABUSE, OFF LABEL USE
     Route: 065
  102. METOCLOPRAMIDE [Suspect]
     Active Substance: METOCLOPRAMIDE
     Dosage: 20 MG, QD
     Route: 065
  103. SERTRALINE [Suspect]
     Active Substance: SERTRALINE HYDROCHLORIDE
     Indication: Product used for unknown indication
     Dosage: 50 MG, QD EVERY MORNING
     Route: 065
  104. SERTRALINE [Suspect]
     Active Substance: SERTRALINE HYDROCHLORIDE
     Dosage: 50 MG, QD
     Route: 065
  105. DEXAMETHASONE [Suspect]
     Active Substance: DEXAMETHASONE
     Indication: Product used for unknown indication
     Dosage: 20 MG, QD, DOSAGE FORM: UNSPECIFIED
     Route: 065
     Dates: start: 20171102, end: 20171106
  106. DEXAMETHASONE [Suspect]
     Active Substance: DEXAMETHASONE
     Dosage: 20 MG, UNK
     Route: 065
  107. BENDROFLUMETHIAZIDE [Concomitant]
     Active Substance: BENDROFLUMETHIAZIDE
     Indication: Product used for unknown indication
     Dosage: 2.5 MG, QD
     Route: 065
  108. RAMIPRIL [Concomitant]
     Active Substance: RAMIPRIL
     Indication: Product used for unknown indication
     Dosage: 10 MG, QD(10 MG, QD ONCE A DAY UNSPESIFIED DOSAGE FORM EVERY MORNING)
     Route: 065
  109. SERTRALINE [Concomitant]
     Active Substance: SERTRALINE HYDROCHLORIDE
     Indication: Product used for unknown indication
     Dosage: 50 MG, QD
     Route: 065
  110. METOCLOPRAMIDE [Concomitant]
     Active Substance: METOCLOPRAMIDE
     Indication: Product used for unknown indication
     Dosage: 20 MG, QD
     Route: 065
  111. OMEPRAZOLE [Concomitant]
     Active Substance: OMEPRAZOLE
     Indication: Product used for unknown indication
     Dosage: 10 MG, QD
     Route: 065

REACTIONS (14)
  - Off label use [Unknown]
  - Product use in unapproved indication [Unknown]
  - Drug abuse [Unknown]
  - Intentional product misuse [Unknown]
  - Incorrect route of product administration [Unknown]
  - Medication error [Unknown]
  - Hallucination [Recovered/Resolved]
  - Confusional state [Recovered/Resolved]
  - Abnormal behaviour [Recovered/Resolved]
  - Disorientation [Recovered/Resolved]
  - Agitation [Recovered/Resolved]
  - Paranoia [Recovered/Resolved]
  - Disturbance in social behaviour [Recovered/Resolved]
  - Emotional distress [Not Recovered/Not Resolved]

NARRATIVE: CASE EVENT DATE: 20171107
